FAERS Safety Report 4972817-6 (Version None)
Quarter: 2006Q2

REPORT INFORMATION
  Report Type: 
  Country: None (occurrence: None)
  Receive Date: 20060414
  Receipt Date: 20060404
  Transmission Date: 20061013
  Serious: Yes (Other)
  Sender: FDA-Public Use
  Company Number: US-JNJFOC-20060401336

PATIENT
  Sex: Male

DRUGS (2)
  1. TRAMADOL [Suspect]
     Route: 048
  2. TRAMADOL [Suspect]
     Route: 048

REACTIONS (2)
  - ANGINA PECTORIS [None]
  - PALPITATIONS [None]
